FAERS Safety Report 5892193-4 (Version None)
Quarter: 2008Q3

REPORT INFORMATION
  Report Type: 
  Country: None (occurrence: None)
  Receive Date: 20080918
  Receipt Date: 20080904
  Transmission Date: 20090109
  Serious: Yes (Other)
  Sender: FDA-Public Use
  Company Number: 2008S1016210

PATIENT
  Age: 44 Year
  Sex: Male

DRUGS (5)
  1. AZATHIOPRINE [Suspect]
     Indication: GLOMERULONEPHRITIS
  2. PREDNISONE [Suspect]
     Indication: DRUG USE FOR UNKNOWN INDICATION
     Dosage: 30 MG; DAILY
  3. EFAVIRENZ (EFAVTRENZ) [Concomitant]
     Indication: HIV INFECTION
  4. EMTRICITABINE (EMTRICITABINE) [Suspect]
     Indication: HIV INFECTION
  5. LOPINAVIR (LOPINAVIR) [Suspect]
     Indication: HIV INFECTION

REACTIONS (2)
  - OSTEOMYELITIS [None]
  - SALMONELLOSIS [None]
